FAERS Safety Report 7014787-5 (Version None)
Quarter: 2010Q3

REPORT INFORMATION
  Report Type: 
  Country: None (occurrence: None)
  Receive Date: 20100927
  Receipt Date: 20100921
  Transmission Date: 20110219
  Serious: Yes (Death, Hospitalization)
  Sender: FDA-Public Use
  Company Number: PHHO2010AR03565

PATIENT
  Sex: Male
  Weight: 88.4 kg

DRUGS (6)
  1. BLINDED ALISKIREN ALI+TAB+CF [Suspect]
     Dosage: CODE NOT BROKEN
     Route: 048
     Dates: end: 20100301
  2. ENALAPRIL MALEATE [Suspect]
     Dosage: CODE NOT BROKEN
     Route: 048
     Dates: end: 20100301
  3. BLINDED NO TREATMENT RECEIVED NOMED [Suspect]
     Dosage: CODE NOT BROKEN
     Route: 048
     Dates: end: 20100301
  4. ALISKIREN [Suspect]
     Indication: CARDIAC FAILURE
     Route: 048
  5. COMPARATOR ENALAPRIL [Suspect]
     Indication: CARDIAC FAILURE
     Dosage: UNK
     Route: 048
     Dates: start: 20091216
  6. CARVEDILOL [Concomitant]

REACTIONS (11)
  - CARDIAC FAILURE [None]
  - DISEASE PROGRESSION [None]
  - DRUG INEFFECTIVE [None]
  - DYSPNOEA [None]
  - HEPATOMEGALY [None]
  - OEDEMA [None]
  - OEDEMA PERIPHERAL [None]
  - ORTHOPNOEA [None]
  - RALES [None]
  - SUDDEN DEATH [None]
  - WEIGHT INCREASED [None]
